FAERS Safety Report 15235190 (Version 1)
Quarter: 2018Q3

REPORT INFORMATION
  Report Type: Report from Study
  Country: US (occurrence: US)
  Receive Date: 20180803
  Receipt Date: 20180803
  Transmission Date: 20181010
  Serious: Yes (Other)
  Sender: FDA-Public Use
  Company Number: US-EMD SERONO-E2B_90053283

PATIENT
  Age: 29 Year
  Sex: Female

DRUGS (1)
  1. REBIF [Suspect]
     Active Substance: INTERFERON BETA-1A
     Indication: MULTIPLE SCLEROSIS
     Route: 058
     Dates: start: 20170925

REACTIONS (4)
  - Haematemesis [Unknown]
  - Injection site erythema [Unknown]
  - Influenza like illness [Unknown]
  - Injection site bruising [Unknown]

NARRATIVE: CASE EVENT DATE: 20180723
